FAERS Safety Report 11584870 (Version 1)
Quarter: 2015Q4

REPORT INFORMATION
  Report Type: Report from Study
  Country: BR (occurrence: BR)
  Receive Date: 20151001
  Receipt Date: 20151001
  Transmission Date: 20160304
  Serious: Yes (Hospitalization)
  Sender: FDA-Public Use
  Company Number: PHHY2015BR117120

PATIENT
  Sex: Male

DRUGS (1)
  1. EXJADE [Suspect]
     Active Substance: DEFERASIROX
     Indication: SICKLE CELL ANAEMIA
     Dosage: 2 DF (TABLETS OF 500 MG), UNK
     Route: 065

REACTIONS (4)
  - Ulcer [Unknown]
  - Nausea [Unknown]
  - Anaemia [Unknown]
  - Localised infection [Recovered/Resolved]
